FAERS Safety Report 12303978 (Version 2)
Quarter: 2016Q2

REPORT INFORMATION
  Report Type: Spontaneous
  Country: US (occurrence: US)
  Receive Date: 20160426
  Receipt Date: 20160608
  Transmission Date: 20160815
  Serious: No
  Sender: FDA-Public Use
  Company Number: US-JNJFOC-20160407219

PATIENT
  Age: 7 Year
  Sex: Male

DRUGS (7)
  1. RISPERDAL [Suspect]
     Active Substance: RISPERIDONE
     Indication: ABNORMAL BEHAVIOUR
     Route: 048
     Dates: start: 20090909, end: 2014
  2. RISPERDAL [Suspect]
     Active Substance: RISPERIDONE
     Indication: ABNORMAL BEHAVIOUR
     Route: 048
     Dates: end: 20140924
  3. RISPERDAL [Suspect]
     Active Substance: RISPERIDONE
     Indication: ABNORMAL BEHAVIOUR
     Route: 048
     Dates: start: 20090123, end: 20090407
  4. RISPERDAL [Suspect]
     Active Substance: RISPERIDONE
     Indication: ABNORMAL BEHAVIOUR
     Route: 048
     Dates: end: 20090903
  5. RISPERIDONE. [Suspect]
     Active Substance: RISPERIDONE
     Indication: ABNORMAL BEHAVIOUR
     Route: 065
     Dates: start: 20101227, end: 20140109
  6. RISPERIDONE. [Suspect]
     Active Substance: RISPERIDONE
     Indication: ABNORMAL BEHAVIOUR
     Route: 065
     Dates: start: 20090415, end: 20101120
  7. RISPERIDONE. [Suspect]
     Active Substance: RISPERIDONE
     Indication: ABNORMAL BEHAVIOUR
     Route: 065
     Dates: start: 20140116, end: 20140511

REACTIONS (2)
  - Gynaecomastia [Unknown]
  - Obesity [Unknown]

NARRATIVE: CASE EVENT DATE: 20090903
